FAERS Safety Report 12850087 (Version 1)
Quarter: 2016Q4

REPORT INFORMATION
  Report Type: Spontaneous
  Country: US (occurrence: US)
  Receive Date: 20161014
  Receipt Date: 20161014
  Transmission Date: 20170207
  Serious: No
  Sender: FDA-Public Use
  Company Number: US-ROCHE-1813492

PATIENT
  Age: 69 Year
  Sex: Male

DRUGS (1)
  1. ESBRIET [Suspect]
     Active Substance: PIRFENIDONE
     Indication: IDIOPATHIC PULMONARY FIBROSIS
     Dosage: (3) 267 MG
     Route: 048
     Dates: start: 201506

REACTIONS (4)
  - Dyspepsia [Unknown]
  - Rhinorrhoea [Unknown]
  - Weight decreased [Unknown]
  - Dysgeusia [Unknown]

NARRATIVE: CASE EVENT DATE: 201506
